FAERS Safety Report 5496295-6 (Version None)
Quarter: 2007Q4

REPORT INFORMATION
  Report Type: 
  Country: None (occurrence: None)
  Receive Date: 20071025
  Receipt Date: 20070322
  Transmission Date: 20080405
  Serious: No
  Sender: FDA-Public Use
  Company Number: A0644262A

PATIENT
  Age: 62 Year
  Sex: Female

DRUGS (14)
  1. ADVAIR DISKUS 100/50 [Suspect]
     Indication: CHRONIC OBSTRUCTIVE PULMONARY DISEASE
     Dosage: 1PUFF TWICE PER DAY
     Route: 055
     Dates: start: 20060901
  2. ACTONEL [Concomitant]
  3. METHADONE HCL [Concomitant]
  4. NEURONTIN [Concomitant]
  5. ZOLOFT [Concomitant]
  6. SINGULAIR [Concomitant]
  7. GLIPIZIDE [Concomitant]
  8. LIPITOR [Concomitant]
  9. KLONOPIN [Concomitant]
  10. ALBUTEROL [Concomitant]
  11. EPIDURAL [Concomitant]
  12. CATAFLAM [Concomitant]
  13. ULTRAM [Concomitant]
  14. DUONEB [Concomitant]

REACTIONS (4)
  - ARTHRITIS [None]
  - CARPAL TUNNEL SYNDROME [None]
  - MUSCULAR WEAKNESS [None]
  - PAIN [None]
